FAERS Safety Report 5447791-9 (Version None)
Quarter: 2007Q3

REPORT INFORMATION
  Report Type: 
  Country: None (occurrence: None)
  Receive Date: 20070910
  Receipt Date: 20070905
  Transmission Date: 20080115
  Serious: Yes (Death, Other)
  Sender: FDA-Public Use
  Company Number: GB-ASTRAZENECA-2007GB01414

PATIENT
  Sex: Female

DRUGS (12)
  1. SEROQUEL [Suspect]
     Indication: AGITATION
     Route: 048
     Dates: start: 20060820, end: 20060901
  2. SEROQUEL [Suspect]
     Indication: RESTLESSNESS
     Route: 048
     Dates: start: 20060820, end: 20060901
  3. SEROQUEL [Suspect]
     Indication: EMOTIONAL DISTRESS
     Route: 048
     Dates: start: 20060820, end: 20060901
  4. LORAZEPAM [Concomitant]
     Indication: CONFUSIONAL STATE
     Route: 048
     Dates: start: 20060819
  5. LORAZEPAM [Concomitant]
     Indication: AGITATION
     Route: 048
     Dates: start: 20060819
  6. LORAZEPAM [Concomitant]
     Indication: AGGRESSION
     Route: 048
     Dates: start: 20060819
  7. LORAZEPAM [Concomitant]
     Route: 030
     Dates: start: 20060819
  8. LORAZEPAM [Concomitant]
     Route: 030
     Dates: start: 20060819
  9. LORAZEPAM [Concomitant]
     Route: 030
     Dates: start: 20060819
  10. LORAZEPAM [Concomitant]
     Dosage: FOUR MORE DOSES GIVEN IN THIS TIME
     Dates: start: 20060824, end: 20060901
  11. LORAZEPAM [Concomitant]
     Dosage: FOUR MORE DOSES GIVEN IN THIS TIME
     Dates: start: 20060824, end: 20060901
  12. LORAZEPAM [Concomitant]
     Dosage: FOUR MORE DOSES GIVEN IN THIS TIME
     Dates: start: 20060824, end: 20060901

REACTIONS (5)
  - FATIGUE [None]
  - INTENTION TREMOR [None]
  - NERVOUS SYSTEM DISORDER [None]
  - PARKINSONISM [None]
  - TREMOR [None]
